FAERS Safety Report 25999463 (Version 1)
Quarter: 2025Q4

REPORT INFORMATION
  Report Type: Report from Study
  Country: US (occurrence: None)
  Receive Date: 20251105
  Receipt Date: 20251105
  Transmission Date: 20260118
  Serious: Yes (Other)
  Sender: UCB
  Company Number: US-UCBSA-2025067702

PATIENT
  Age: 44 Year
  Weight: 53 kg

DRUGS (1)
  1. FENFLURAMINE [Suspect]
     Active Substance: FENFLURAMINE
     Indication: Product used for unknown indication
     Dosage: UNK

REACTIONS (3)
  - Mitral valve thickening [Not Recovered/Not Resolved]
  - Malaise [Unknown]
  - Aggression [Unknown]
